FAERS Safety Report 6292009-0 (Version None)
Quarter: 2009Q3

REPORT INFORMATION
  Report Type: 
  Country: None (occurrence: None)
  Receive Date: 20090729
  Receipt Date: 20090715
  Transmission Date: 20100115
  Serious: Yes (Other)
  Sender: FDA-Public Use
  Company Number: JPI-P-007955

PATIENT
  Age: 35 Year
  Sex: Male

DRUGS (3)
  1. XYREM [Suspect]
     Indication: CATAPLEXY
     Dosage: 4.5 GM (2.25 GM, 2 IN 1 D), ORAL, 7.5 GM, 2 IN 1 D), ORAL
     Route: 048
     Dates: start: 20090604, end: 20090601
  2. XYREM [Suspect]
     Indication: CATAPLEXY
     Dosage: 4.5 GM (2.25 GM, 2 IN 1 D), ORAL, 7.5 GM, 2 IN 1 D), ORAL
     Route: 048
     Dates: start: 20090511, end: 20090603
  3. XYREM [Suspect]
     Indication: CATAPLEXY
     Dosage: 4.5 GM (2.25 GM, 2 IN 1 D), ORAL, 7.5 GM, 2 IN 1 D), ORAL
     Route: 048
     Dates: start: 20090712

REACTIONS (3)
  - DECREASED APPETITE [None]
  - INFLUENZA LIKE ILLNESS [None]
  - NAUSEA [None]
